FAERS Safety Report 17707296 (Version 2)
Quarter: 2020Q2

REPORT INFORMATION
  Report Type: Spontaneous
  Country: IL (occurrence: IL)
  Receive Date: 20200424
  Receipt Date: 20200428
  Transmission Date: 20200714
  Serious: No
  Sender: FDA-Public Use
  Company Number: IL-009507513-2004ISR006957

PATIENT
  Sex: Male

DRUGS (2)
  1. MOMETASONE FUROATE. [Suspect]
     Active Substance: MOMETASONE FUROATE
  2. ELOCOM [Suspect]
     Active Substance: MOMETASONE FUROATE

REACTIONS (4)
  - Ocular hyperaemia [Not Recovered/Not Resolved]
  - Eye irritation [Recovered/Resolved]
  - Incorrect route of product administration [Unknown]
  - Product confusion [Unknown]

NARRATIVE: CASE EVENT DATE: 20200422
